FAERS Safety Report 14196882 (Version 1)
Quarter: 2017Q4

REPORT INFORMATION
  Report Type: Spontaneous
  Country: US (occurrence: US)
  Receive Date: 20171116
  Receipt Date: 20171116
  Transmission Date: 20180321
  Serious: No
  Sender: FDA-Public Use
  Company Number: US-TAIHO ONCOLOGY INC-EU-2017-01429

PATIENT
  Age: 79 Year
  Sex: Female
  Weight: 49.49 kg

DRUGS (1)
  1. LONSURF [Suspect]
     Active Substance: TIPIRACIL HYDROCHLORIDE\TRIFLURIDINE
     Indication: COLON CANCER
     Route: 048
     Dates: start: 20171101

REACTIONS (4)
  - Vomiting [Unknown]
  - Feeding disorder [Unknown]
  - Hiccups [Unknown]
  - Headache [Unknown]

NARRATIVE: CASE EVENT DATE: 20171101
